FAERS Safety Report 4494874-6 (Version None)
Quarter: 2004Q4

REPORT INFORMATION
  Report Type: 
  Country: None (occurrence: None)
  Receive Date: 20041103
  Receipt Date: 20041021
  Transmission Date: 20050328
  Serious: Yes (Other)
  Sender: FDA-Public Use
  Company Number: 2004083466

PATIENT
  Age: 79 Year
  Sex: Male

DRUGS (15)
  1. LIPITOR [Suspect]
     Indication: ILL-DEFINED DISORDER
     Dosage: 20 MG (20 MG, 1 IN 1 D)
  2. DRUG USED IN DIABETES (DRUG USED IN DIABETES) [Concomitant]
  3. ALENDRONATE SODIUM [Concomitant]
  4. VITAMINS (VITAMINS) [Concomitant]
  5. WARFARIN SODIUM [Concomitant]
  6. RAMIPRIL [Concomitant]
  7. METFORMIN HCL [Concomitant]
  8. DILTIAZEM [Concomitant]
  9. DIGOXIN [Concomitant]
  10. BUMETANIDE [Concomitant]
  11. ASCORBIC ACID [Concomitant]
  12. DIURETICS (DIURETICS) [Concomitant]
  13. ALL OTHER THERAPEUTIC PRODUCTS (ALL OTHER THERAPEUTIC PRODUCTS) [Concomitant]
  14. ANTITHROMBOTIC AGENTS (ANTITHROMBOTIC AGENTS) [Concomitant]
  15. ANTIHYPERTENSIVES (ANTIHYPERTENSIVES) [Concomitant]

REACTIONS (3)
  - CAROTID ARTERY STENOSIS [None]
  - NERVE INJURY [None]
  - NEUROPATHY [None]
